FAERS Safety Report 6219245-3 (Version None)
Quarter: 2009Q2

REPORT INFORMATION
  Report Type: 
  Country: None (occurrence: None)
  Receive Date: 20090605
  Receipt Date: 20090605
  Transmission Date: 20091009
  Serious: No
  Sender: FDA-Public Use
  Company Number: None

PATIENT
  Age: 77 Year
  Sex: Female
  Weight: 58 kg

DRUGS (6)
  1. AMBIEN CR [Suspect]
     Indication: SLEEP DISORDER
     Dosage: 1 TAB HS PO
     Route: 048
     Dates: start: 20081009, end: 20081101
  2. VICODIN [Suspect]
     Indication: BACK PAIN
     Dosage: 1 TAB Q4H PRN PO
     Route: 048
     Dates: start: 20081018, end: 20081021
  3. LISINOPRIL [Concomitant]
  4. DIGOXIN [Concomitant]
  5. MOBIC [Concomitant]
  6. OMEPRAZOLE [Concomitant]

REACTIONS (2)
  - AMNESIA [None]
  - CONFUSIONAL STATE [None]
